FAERS Safety Report 5800598-2 (Version None)
Quarter: 2008Q3

REPORT INFORMATION
  Report Type: 
  Country: None (occurrence: None)
  Receive Date: 20080702
  Receipt Date: 20080702
  Transmission Date: 20090109
  Serious: No
  Sender: FDA-Public Use
  Company Number: None

PATIENT
  Sex: Female

DRUGS (1)
  1. FORTEO [Suspect]
     Indication: OSTEOPOROSIS
     Dosage: 20MCG DAILY SQ
     Route: 058

REACTIONS (6)
  - DRUG INTERACTION [None]
  - MUSCLE SPASMS [None]
  - NAUSEA [None]
  - NONSPECIFIC REACTION [None]
  - PAIN [None]
  - VOMITING [None]
